FAERS Safety Report 10231341 (Version 1)
Quarter: 2014Q2

REPORT INFORMATION
  Report Type: Spontaneous
  Country: GB (occurrence: GB)
  Receive Date: 20140611
  Receipt Date: 20140611
  Transmission Date: 20141212
  Serious: Yes (Other)
  Sender: FDA-Public Use
  Company Number: GB-ABBVIE-14P-167-1246584-00

PATIENT
  Age: 16 Year
  Sex: Female

DRUGS (1)
  1. SODIUM VALPROATE [Suspect]
     Indication: MATERNAL EXPOSURE TIMING UNSPECIFIED
     Route: 064

REACTIONS (2)
  - Asperger^s disorder [Not Recovered/Not Resolved]
  - Foetal exposure during pregnancy [Unknown]
